FAERS Safety Report 10043150 (Version 1)
Quarter: 2014Q1

REPORT INFORMATION
  Report Type: Spontaneous
  Country: US (occurrence: US)
  Receive Date: 20140328
  Receipt Date: 20140328
  Transmission Date: 20141002
  Serious: No
  Sender: FDA-Public Use
  Company Number: US-009507513-1403USA013107

PATIENT
  Sex: Female

DRUGS (5)
  1. JANUMET [Suspect]
     Indication: TYPE 2 DIABETES MELLITUS
     Dosage: UNK
     Route: 048
     Dates: start: 2007
  2. CRESTOR [Concomitant]
  3. LIALDA [Concomitant]
  4. LUMIGAN [Concomitant]
  5. INVOKANA [Concomitant]

REACTIONS (4)
  - Dizziness [Recovered/Resolved]
  - Blood glucose decreased [Recovered/Resolved]
  - Swelling face [Recovered/Resolved]
  - Lip swelling [Recovered/Resolved]
